FAERS Safety Report 7048963-2 (Version None)
Quarter: 2010Q4

REPORT INFORMATION
  Report Type: 
  Country: None (occurrence: None)
  Receive Date: 20101012
  Receipt Date: 20100928
  Transmission Date: 20110411
  Serious: Yes (Hospitalization)
  Sender: FDA-Public Use
  Company Number: 1000016588

PATIENT
  Age: 51 Year
  Sex: Male

DRUGS (9)
  1. ESCITALOPRAM [Suspect]
     Dosage: 20 MG (20 MG,1 IN 1 D),ORAL
     Route: 048
     Dates: start: 20100501
  2. LEXOMIL(BROMAZEPAM) [Suspect]
     Dosage: 18 MG (6 MG,3 IN 1 D)
     Dates: start: 20100501
  3. MEPRONIZINE (MEPRONIZINE) [Suspect]
     Dosage: 1 DOSAGE FORMS (1 DOSAGE FORMS,1 IN 1 D),ORAL
     Route: 048
     Dates: start: 20100501
  4. TAREG (VALSARTAN) [Suspect]
     Dosage: 160 MG (160 MG,1 IN 1 D),ORAL
     Route: 048
     Dates: start: 20100501
  5. FENOFIBRATE [Suspect]
     Dosage: 200 MG (200 MG,1 IN 1 D),OTHER
     Dates: start: 20100501
  6. KARDEGIC (ACETYLSALICYLIC LYSINE) [Suspect]
     Dosage: 160 MG (160 MG,1 IN 1 D),ORAL
     Route: 048
     Dates: start: 20100501
  7. ADANCOR (NICORANDIL) [Suspect]
     Dosage: 40 MG (20 MG,2 IN 1 D),ORAL
     Route: 048
     Dates: start: 20100501
  8. ACEBUTOLOL [Suspect]
     Dosage: 400 MG (200 MG,2 IN 1 D),ORAL
     Route: 048
     Dates: start: 20100501
  9. OGAST (LANSOPRAZOLE) [Suspect]
     Dosage: 30 MG (30 MG,1 IN 1 D),ORAL
     Route: 048
     Dates: start: 20100501

REACTIONS (1)
  - OPTIC NEUROPATHY [None]
